FAERS Safety Report 10010339 (Version 1)
Quarter: 2014Q1

REPORT INFORMATION
  Report Type: Spontaneous
  Country: GB (occurrence: GB)
  Receive Date: 20140314
  Receipt Date: 20140314
  Transmission Date: 20141002
  Serious: Yes (Life-Threatening, Hospitalization)
  Sender: FDA-Public Use
  Company Number: GB-ACCORD-022397

PATIENT
  Age: 63 Year
  Sex: Female
  Weight: 110 kg

DRUGS (8)
  1. SIMVASTATIN [Suspect]
     Indication: PROPHYLAXIS
     Dosage: AT NIGHT
     Route: 048
     Dates: end: 20140211
  2. CO-CODAMOL [Concomitant]
  3. SALBUTAMOL [Concomitant]
  4. SYMBICORT [Concomitant]
  5. ENALAPRIL [Concomitant]
  6. DILTIAZEM [Concomitant]
  7. ASPIRIN [Concomitant]
  8. FOLIC ACID [Concomitant]

REACTIONS (3)
  - Fall [Unknown]
  - Loss of consciousness [Unknown]
  - Rhabdomyolysis [Recovered/Resolved]
